FAERS Safety Report 22040019 (Version 1)
Quarter: 2023Q1

REPORT INFORMATION
  Report Type: Spontaneous
  Country: US (occurrence: US)
  Receive Date: 20230227
  Receipt Date: 20230227
  Transmission Date: 20230417
  Serious: No
  Sender: FDA-Public Use
  Company Number: US-ViiV Healthcare Limited-92041

PATIENT
  Sex: Female

DRUGS (3)
  1. CABENUVA [Suspect]
     Active Substance: CABOTEGRAVIR\RILPIVIRINE
     Indication: Product used for unknown indication
     Dosage: UNK
     Dates: start: 20220715, end: 20230120
  2. CABENUVA [Suspect]
     Active Substance: CABOTEGRAVIR\RILPIVIRINE
  3. CABENUVA [Suspect]
     Active Substance: CABOTEGRAVIR\RILPIVIRINE

REACTIONS (7)
  - Sleep disorder [Unknown]
  - Insomnia [Unknown]
  - Muscular weakness [Unknown]
  - Headache [Unknown]
  - Pruritus [Unknown]
  - Asthenia [Unknown]
  - Performance status decreased [Unknown]
